FAERS Safety Report 8785467 (Version 1)
Quarter: 2012Q4

REPORT INFORMATION
  Report Type: Spontaneous
  Country: US (occurrence: None)
  Receive Date: 20120904
  Receipt Date: 20120904
  Transmission Date: 20130627
  Serious: Yes (Other)
  Sender: FDA-Public Use
  Company Number: COL_12291_2012

PATIENT
  Sex: Female

DRUGS (4)
  1. COLGATE TOTAL WHITENING [Suspect]
     Indication: DENTAL CARIES
     Dosage: (A pea sized amount/BID/ Oral)
     Route: 048
     Dates: start: 2012, end: 20120815
  2. COLGATE TOTAL WHITENING [Suspect]
     Indication: DENTAL PLAQUE
     Dosage: (A pea sized amount/BID/ Oral)
     Route: 048
     Dates: start: 2012, end: 20120815
  3. COLGATE TOTAL WHITENING [Suspect]
     Dosage: (A pea sized amount/BID/ Oral)
     Route: 048
     Dates: start: 2012, end: 20120815
  4. WARFARIN [Concomitant]

REACTIONS (4)
  - Myalgia [None]
  - Hypothyroidism [None]
  - Oropharyngeal pain [None]
  - Multiple allergies [None]
